FAERS Safety Report 9948728 (Version 1)
Quarter: 2014Q1

REPORT INFORMATION
  Report Type: Other
  Country: DE (occurrence: DE)
  Receive Date: 20140304
  Receipt Date: 20140304
  Transmission Date: 20141002
  Serious: Yes (Congenital Anomaly, Other)
  Sender: FDA-Public Use
  Company Number: DE-LUPIN PHARMACEUTICALS INC.-E2B_00001725

PATIENT
  Age: 1 Day
  Sex: Male
  Weight: 2.14 kg

DRUGS (3)
  1. LAMOTRIGIN [Suspect]
     Indication: DEPRESSION
     Route: 064
     Dates: start: 20120525, end: 20130207
  2. ESCITALOPRAM [Suspect]
     Indication: DEPRESSION
     Route: 064
     Dates: start: 20120525, end: 20130207
  3. FEMIBION PREGNANCY 1 [Concomitant]
     Indication: PROPHYLAXIS OF NEURAL TUBE DEFECT
     Route: 064
     Dates: end: 20130207

REACTIONS (5)
  - Hypospadias [Not Recovered/Not Resolved]
  - Premature baby [Recovering/Resolving]
  - Small for dates baby [Recovering/Resolving]
  - Motor developmental delay [Unknown]
  - Foetal exposure during pregnancy [Unknown]
